FAERS Safety Report 19971950 (Version 1)
Quarter: 2021Q4

REPORT INFORMATION
  Report Type: Spontaneous
  Country: US (occurrence: US)
  Receive Date: 20211019
  Receipt Date: 20211019
  Transmission Date: 20220303
  Serious: No
  Sender: FDA-Public Use
  Company Number: US-BAYER-2021A233084

PATIENT
  Age: 66 Year
  Sex: Female

DRUGS (10)
  1. CIPRO [Suspect]
     Active Substance: CIPROFLOXACIN HYDROCHLORIDE
     Dosage: UNK
     Dates: start: 20210701
  2. RITUXAN [Concomitant]
     Active Substance: RITUXIMAB
  3. AVAPRO [Concomitant]
     Active Substance: IRBESARTAN
  4. LIPITOR [Concomitant]
     Active Substance: ATORVASTATIN CALCIUM
  5. ASPIRIN [Concomitant]
     Active Substance: ASPIRIN
  6. VITAMIN D NOS [Concomitant]
     Active Substance: VITAMIN D NOS
  7. ADVAIR HFA [Concomitant]
     Active Substance: FLUTICASONE PROPIONATE\SALMETEROL XINAFOATE
  8. BUDESONIDE [Concomitant]
     Active Substance: BUDESONIDE
  9. SYNTHROID [Concomitant]
     Active Substance: LEVOTHYROXINE SODIUM
  10. DIFLUCAN [Concomitant]
     Active Substance: FLUCONAZOLE

REACTIONS (3)
  - Drug hypersensitivity [Recovering/Resolving]
  - Rash [Recovering/Resolving]
  - Erythema [Recovering/Resolving]

NARRATIVE: CASE EVENT DATE: 20210705
